FAERS Safety Report 8008602-0 (Version None)
Quarter: 2011Q4

REPORT INFORMATION
  Report Type: 
  Country: None (occurrence: None)
  Receive Date: 20111227
  Receipt Date: 20111213
  Transmission Date: 20120403
  Serious: Yes (Other)
  Sender: FDA-Public Use
  Company Number: DE-ROCHE-GNE297449

PATIENT
  Age: 11 Year
  Sex: Male

DRUGS (4)
  1. DESLORATADINE [Concomitant]
  2. XOLAIR [Suspect]
     Indication: PRODUCT USED FOR UNKNOWN INDICATION
     Dosage: 300 MG, UNK
     Route: 058
     Dates: start: 20100115, end: 20100115
  3. SINGULAIR [Concomitant]
  4. SYMBICORT [Concomitant]

REACTIONS (5)
  - HEMIPLEGIA [None]
  - PAIN [None]
  - VISION BLURRED [None]
  - EYE DISORDER [None]
  - PARAESTHESIA [None]
